FAERS Safety Report 23141634 (Version 1)
Quarter: 2023Q4

REPORT INFORMATION
  Report Type: Spontaneous
  Country: BR (occurrence: BR)
  Receive Date: 20231103
  Receipt Date: 20231103
  Transmission Date: 20240109
  Serious: Yes (Other)
  Sender: FDA-Public Use
  Company Number: BR-BAXTER-2023BAX034686

PATIENT
  Age: 37 Year
  Sex: Female
  Weight: 55 kg

DRUGS (3)
  1. IRON [Suspect]
     Active Substance: IRON
     Indication: Anaemia
     Dosage: 2 AMPUOLES DILUTED IN 250 ML SALINE SOLUTION IN 50 MINUTES, EVERY 24 HRS
     Route: 042
     Dates: start: 20231011, end: 20231011
  2. SODIUM CHLORIDE [Suspect]
     Active Substance: SODIUM CHLORIDE
     Indication: Medication dilution
     Dosage: 250 ML IN 50 MINUTES, EVERY 24 HRS
     Route: 042
     Dates: start: 20231011, end: 20231011
  3. Fisiogen [Concomitant]
     Indication: Anaemia
     Dosage: (IRON 14 MG+ VITAMIN C 60 MG+ VITAMIN B12 0.375 MICROGRAMS)
     Route: 048

REACTIONS (8)
  - Skin plaque [Recovered/Resolved]
  - Laryngeal oedema [Recovered/Resolved]
  - Eye oedema [Recovered/Resolved]
  - Nausea [Recovered/Resolved]
  - Vomiting [Recovered/Resolved]
  - Pruritus [Recovered/Resolved]
  - Product administration error [Unknown]
  - Maternal exposure during pregnancy [Unknown]

NARRATIVE: CASE EVENT DATE: 20231011
